FAERS Safety Report 6405314-1 (Version None)
Quarter: 2009Q4

REPORT INFORMATION
  Report Type: 
  Country: None (occurrence: None)
  Receive Date: 20091016
  Receipt Date: 20091016
  Transmission Date: 20100525
  Serious: Yes (Other)
  Sender: FDA-Public Use
  Company Number: None

PATIENT
  Sex: Male
  Weight: 90.7194 kg

DRUGS (3)
  1. SIMVASTATIN [Suspect]
     Dosage: 1 20 MG/DAY QUIT TAKIN SEPT.
     Dates: start: 20090601
  2. SIMVASTATIN [Suspect]
     Dosage: 1 20 MG/DAY QUIT TAKIN SEPT.
     Dates: start: 20090701
  3. SIMVASTATIN [Suspect]
     Dosage: 1 20 MG/DAY QUIT TAKIN SEPT.
     Dates: start: 20090801

REACTIONS (1)
  - ARTHRALGIA [None]
